FAERS Safety Report 25938395 (Version 1)
Quarter: 2025Q4

REPORT INFORMATION
  Report Type: Spontaneous
  Country: GB (occurrence: GB)
  Receive Date: 20251019
  Receipt Date: 20251019
  Transmission Date: 20260118
  Serious: Yes (Disabling, Other)
  Sender: DEXCEL LTD.
  Company Number: None

PATIENT
  Age: 56 Year
  Sex: Male
  Weight: 69 kg

DRUGS (7)
  1. ISOSORBIDE MONONITRATE [Suspect]
     Active Substance: ISOSORBIDE MONONITRATE
     Indication: Ill-defined disorder
     Dates: start: 20251009
  2. CLOPIDOGREL [Concomitant]
     Active Substance: CLOPIDOGREL BISULFATE
     Indication: Ill-defined disorder
     Dosage: TAKE ONE ONCE DAILY
     Dates: start: 20250623, end: 20250919
  3. LANSOPRAZOLE [Concomitant]
     Active Substance: LANSOPRAZOLE
     Indication: Ill-defined disorder
     Dosage: TAKE ONE ONCE DAILY
     Dates: start: 20250623, end: 20250919
  4. ASPIRIN [Concomitant]
     Active Substance: ASPIRIN
     Indication: Ill-defined disorder
     Dosage: TAKE ONE DAILY
     Dates: start: 20250527
  5. MOMETASONE [Concomitant]
     Active Substance: MOMETASONE
     Indication: Ill-defined disorder
     Dosage: USE WHEN REQUIRED AS DIRECED BY ENT
     Dates: start: 20250527
  6. ROSUVASTATIN [Concomitant]
     Active Substance: ROSUVASTATIN
     Indication: Ill-defined disorder
     Dosage: TAKE ONE DAILY
     Dates: start: 20250527
  7. BISOPROLOL [Concomitant]
     Active Substance: BISOPROLOL
     Indication: Ill-defined disorder
     Dosage: TAKE ONE DAILY
     Dates: start: 20250623

REACTIONS (2)
  - Loss of consciousness [Recovered/Resolved]
  - Hypersensitivity [Unknown]

NARRATIVE: CASE EVENT DATE: 20251009
